FAERS Safety Report 7448511-9 (Version None)
Quarter: 2011Q2

REPORT INFORMATION
  Report Type: 
  Country: None (occurrence: None)
  Receive Date: 20110429
  Receipt Date: 20101026
  Transmission Date: 20111010
  Serious: No
  Sender: FDA-Public Use
  Company Number: US-ASTRAZENECA-2010SE27894

PATIENT
  Age: 19629 Day
  Sex: Female
  Weight: 67.1 kg

DRUGS (5)
  1. PAXIL [Concomitant]
     Indication: ANXIETY
  2. NEURONTIN [Concomitant]
     Indication: PARAESTHESIA
  3. NEXIUM [Suspect]
     Indication: GASTROOESOPHAGEAL REFLUX DISEASE
     Route: 048
     Dates: start: 20100408, end: 20100408
  4. LIBRAX [Concomitant]
     Indication: IRRITABLE BOWEL SYNDROME
  5. PAXIL [Concomitant]
     Indication: DEPRESSION

REACTIONS (8)
  - MUSCULOSKELETAL DISCOMFORT [None]
  - HYPERHIDROSIS [None]
  - DYSPNOEA [None]
  - SINUS TACHYCARDIA [None]
  - ASTHENIA [None]
  - RASH [None]
  - PAIN [None]
  - NAUSEA [None]
